FAERS Safety Report 14350673 (Version 2)
Quarter: 2018Q1

REPORT INFORMATION
  Report Type: Spontaneous
  Country: US (occurrence: US)
  Receive Date: 20180104
  Receipt Date: 20180209
  Transmission Date: 20180509
  Serious: Yes (Hospitalization)
  Sender: FDA-Public Use
  Company Number: US-VERTEX PHARMACEUTICALS-2018-000008

PATIENT
  Age: 33 Year
  Sex: Male
  Weight: 47 kg

DRUGS (1)
  1. ORKAMBI [Suspect]
     Active Substance: IVACAFTOR\LUMACAFTOR
     Indication: CYSTIC FIBROSIS
     Dosage: 2 DOSAGE FORM, BID
     Route: 048
     Dates: start: 20171130

REACTIONS (2)
  - Pulmonary function test decreased [Unknown]
  - Chest discomfort [Unknown]

NARRATIVE: CASE EVENT DATE: 20171204
